FAERS Safety Report 5556038-4 (Version None)
Quarter: 2007Q4

REPORT INFORMATION
  Report Type: 
  Country: None (occurrence: None)
  Receive Date: 20071213
  Receipt Date: 20071204
  Transmission Date: 20080405
  Serious: Yes (Other)
  Sender: FDA-Public Use
  Company Number: BR-PFIZER INC-2007102853

PATIENT
  Sex: Male

DRUGS (1)
  1. CELEBRA [Suspect]
     Route: 048

REACTIONS (8)
  - ARTHRALGIA [None]
  - EAR DISCOMFORT [None]
  - EYE IRRITATION [None]
  - FEELING HOT [None]
  - HYPERSENSITIVITY [None]
  - NASAL DISCOMFORT [None]
  - STOMATITIS [None]
  - THROAT TIGHTNESS [None]
